FAERS Safety Report 12707638 (Version 5)
Quarter: 2017Q1

REPORT INFORMATION
  Report Type: Spontaneous
  Country: US (occurrence: US)
  Receive Date: 20160901
  Receipt Date: 20170126
  Transmission Date: 20170428
  Serious: No
  Sender: FDA-Public Use
  Company Number: PHEH2016US022178

PATIENT
  Sex: Female
  Weight: 65.77 kg

DRUGS (1)
  1. ZOFRAN [Suspect]
     Active Substance: ONDANSETRON HYDROCHLORIDE
     Indication: VOMITING IN PREGNANCY
     Dosage: UNK
     Route: 048
     Dates: start: 199801, end: 199805

REACTIONS (6)
  - Emotional distress [Unknown]
  - Anhedonia [Unknown]
  - Injury [Unknown]
  - Anxiety [Unknown]
  - Product use issue [Unknown]
  - Maternal exposure during pregnancy [Unknown]
